FAERS Safety Report 22313765 (Version 1)
Quarter: 2023Q2

REPORT INFORMATION
  Report Type: Spontaneous
  Country: US (occurrence: US)
  Receive Date: 20230512
  Receipt Date: 20230512
  Transmission Date: 20230722
  Serious: Yes (Life-Threatening, Hospitalization, Other)
  Sender: FDA-Public Use
  Company Number: US-PFIZER INC-PV202300081136

PATIENT
  Age: 58 Year
  Sex: Male

DRUGS (1)
  1. CEFEPIME HYDROCHLORIDE [Suspect]
     Active Substance: CEFEPIME HYDROCHLORIDE
     Indication: Intervertebral discitis
     Dosage: 2 G, 2X/DAY
     Route: 042

REACTIONS (2)
  - Toxic encephalopathy [Recovering/Resolving]
  - Tubulointerstitial nephritis [Recovering/Resolving]
